FAERS Safety Report 12304810 (Version 1)
Quarter: 2016Q2

REPORT INFORMATION
  Report Type: Spontaneous
  Country: US (occurrence: None)
  Receive Date: 20160425
  Receipt Date: 20160425
  Transmission Date: 20160815
  Serious: No
  Sender: FDA-Public Use
  Company Number: None

PATIENT
  Sex: Male

DRUGS (1)
  1. IMATINIB MESYLATE 100MG SUN PHARMA [Suspect]
     Active Substance: IMATINIB MESYLATE
     Indication: GASTROINTESTINAL NEOPLASM
     Dosage: FROM -10 MONTH AGO TO CURRENT
     Route: 048

REACTIONS (1)
  - Muscle spasms [None]
